FAERS Safety Report 7364843-7 (Version None)
Quarter: 2011Q1

REPORT INFORMATION
  Report Type: 
  Country: None (occurrence: None)
  Receive Date: 20110321
  Receipt Date: 20110311
  Transmission Date: 20110831
  Serious: Yes (Life-Threatening)
  Sender: FDA-Public Use
  Company Number: JP-ALLERGAN-1103798US

PATIENT
  Age: 61 Year
  Sex: Male

DRUGS (11)
  1. DORZOLAMIDE [Suspect]
     Dosage: 1 GTT, TID
     Dates: start: 20100224, end: 20100512
  2. LEVOFLOXACIN [Suspect]
     Indication: PUNCTATE KERATITIS
     Dosage: UNK
     Route: 047
     Dates: start: 20101224
  3. DICLOD [Concomitant]
     Indication: PRODUCT USED FOR UNKNOWN INDICATION
     Dosage: 1 GTT, TID
     Dates: end: 20101215
  4. DICLOD [Concomitant]
     Dosage: 1 GTT, TID
     Dates: end: 20100618
  5. FLUOROMETHOLONE 0.1% EYEDROPS [Suspect]
     Indication: PUNCTATE KERATITIS
     Dosage: 1 GTT, TID
     Route: 047
     Dates: start: 20101224
  6. DICLOD [Concomitant]
     Dosage: 1 GTT, QD
     Dates: start: 20100224, end: 20100512
  7. S ADCHNON [Concomitant]
     Dosage: UNK
     Route: 048
     Dates: start: 20100622, end: 20101020
  8. LUMIGAN [Suspect]
     Indication: OPEN ANGLE GLAUCOMA
     Dosage: 1 GTT, QD
     Route: 047
     Dates: start: 20091209
  9. DASEN [Concomitant]
     Indication: PRODUCT USED FOR UNKNOWN INDICATION
     Dosage: UNK
     Route: 048
     Dates: start: 20100622, end: 20101020
  10. DORZOLAMIDE [Suspect]
     Indication: PRODUCT USED FOR UNKNOWN INDICATION
     Dosage: 1 GTT, TID
     Route: 047
     Dates: end: 20101215
  11. FLUOROMETHOLONE 0.1% EYEDROPS [Suspect]
     Dosage: 1 GTT, TID
     Route: 047
     Dates: start: 20100224, end: 20100324

REACTIONS (4)
  - CYSTOID MACULAR OEDEMA [None]
  - KERATITIS [None]
  - HYPHAEMA [None]
  - VITREOUS HAEMORRHAGE [None]
